FAERS Safety Report 12322168 (Version 1)
Quarter: 2016Q2

REPORT INFORMATION
  Report Type: Spontaneous
  Country: US (occurrence: US)
  Receive Date: 20160502
  Receipt Date: 20160502
  Transmission Date: 20160815
  Serious: No
  Sender: FDA-Public Use
  Company Number: US-TEVA-653229USA

PATIENT
  Age: 54 Year
  Sex: Male

DRUGS (7)
  1. NUVIGIL [Concomitant]
     Active Substance: ARMODAFINIL
  2. METOPROLOL. [Concomitant]
     Active Substance: METOPROLOL
  3. COPAXONE [Suspect]
     Active Substance: GLATIRAMER ACETATE
     Indication: MULTIPLE SCLEROSIS
     Route: 058
  4. FENOFIBRATE. [Concomitant]
     Active Substance: FENOFIBRATE
  5. OXCARBAZEPIN [Concomitant]
     Active Substance: OXCARBAZEPINE
  6. GABAPENTIN. [Concomitant]
     Active Substance: GABAPENTIN
  7. AMPYRO [Concomitant]

REACTIONS (2)
  - Fall [Recovered/Resolved]
  - Fatigue [Unknown]

NARRATIVE: CASE EVENT DATE: 201603
